FAERS Safety Report 6975622-4 (Version None)
Quarter: 2010Q3

REPORT INFORMATION
  Report Type: 
  Country: None (occurrence: None)
  Receive Date: 20100910
  Receipt Date: 20090317
  Transmission Date: 20110219
  Serious: No
  Sender: FDA-Public Use
  Company Number: US-WYE-H08635709

PATIENT
  Sex: Female
  Weight: 49.94 kg

DRUGS (4)
  1. PRISTIQ [Suspect]
     Indication: DEPRESSION
     Route: 048
     Dates: start: 20090302, end: 20090313
  2. HYDROCHLOROTHIAZIDE [Suspect]
     Indication: MITRAL VALVE PROLAPSE
     Dosage: DAILY AS NEEDED
  3. PROZAC [Suspect]
     Indication: DEPRESSION
     Dosage: UNKNOWN
     Dates: start: 20090316
  4. KLONOPIN [Concomitant]

REACTIONS (4)
  - DIZZINESS [None]
  - DRUG WITHDRAWAL SYNDROME [None]
  - HEADACHE [None]
  - NAUSEA [None]
